FAERS Safety Report 14161581 (Version 1)
Quarter: 2017Q4

REPORT INFORMATION
  Report Type: Spontaneous
  Country: JP (occurrence: JP)
  Receive Date: 20171106
  Receipt Date: 20171106
  Transmission Date: 20180321
  Serious: Yes (Hospitalization)
  Sender: FDA-Public Use
  Company Number: JP-MYLANLABS-2017M1057260

PATIENT
  Age: 80 Year
  Sex: Female
  Weight: 27 kg

DRUGS (3)
  1. CEFTAZIDIME. [Suspect]
     Active Substance: CEFTAZIDIME
     Indication: BACTERAEMIA
     Dosage: 1 G, BID
     Route: 041
     Dates: start: 20170825, end: 20170826
  2. PISULCIN [Suspect]
     Active Substance: AMPICILLIN SODIUM\SULBACTAM SODIUM
     Indication: PNEUMONIA BACTERIAL
     Dosage: 1.5 G, BID
     Route: 041
     Dates: start: 20170808, end: 20170816
  3. ERYTHROCIN STEARATE [Suspect]
     Active Substance: ERYTHROMYCIN STEARATE
     Indication: BRONCHIECTASIS
     Dosage: 400 MG, QD
     Route: 048
     Dates: start: 20170817, end: 20170822

REACTIONS (1)
  - Drug eruption [Recovered/Resolved]

NARRATIVE: CASE EVENT DATE: 20170819
